FAERS Safety Report 12099319 (Version 1)
Quarter: 2016Q1

REPORT INFORMATION
  Report Type: Spontaneous
  Country: US (occurrence: None)
  Receive Date: 20160219
  Receipt Date: 20160219
  Transmission Date: 20160526
  Serious: No
  Sender: FDA-Public Use
  Company Number: None

PATIENT
  Age: 59 Year
  Sex: Female

DRUGS (1)
  1. HUMIRA [Suspect]
     Active Substance: ADALIMUMAB
     Indication: RHEUMATOID ARTHRITIS
     Dosage: 40MG EVERY OTHER MONTH SQ
     Route: 058
     Dates: start: 20151116

REACTIONS (4)
  - Abdominal discomfort [None]
  - Drug effect decreased [None]
  - Nausea [None]
  - Nodule [None]

NARRATIVE: CASE EVENT DATE: 20160217
